FAERS Safety Report 14276286 (Version 1)
Quarter: 2017Q4

REPORT INFORMATION
  Report Type: Other
  Country: GB (occurrence: GB)
  Receive Date: 20171212
  Receipt Date: 20171212
  Transmission Date: 20180321
  Serious: Yes (Hospitalization)
  Sender: FDA-Public Use
  Company Number: GB-CELLTRION INC.-2017GB016891

PATIENT

DRUGS (3)
  1. REMSIMA [Suspect]
     Active Substance: INFLIXIMAB
     Indication: CROHN^S DISEASE
     Dosage: 260 MG, PHARMACEUTICAL DOSE FORM 293
     Route: 042
     Dates: start: 20171110, end: 20171110
  2. REMSIMA [Suspect]
     Active Substance: INFLIXIMAB
     Dosage: 260 MG, PHARMACEUTICAL DOSE FORM 293
     Route: 042
     Dates: start: 20171124, end: 20171124
  3. DIHYDROCODEINE PHOSPHATE [Concomitant]
     Active Substance: DIHYDROCODEINE PHOSPHATE

REACTIONS (5)
  - Hypersensitivity [Unknown]
  - Chest discomfort [Recovered/Resolved with Sequelae]
  - Palpitations [Recovered/Resolved with Sequelae]
  - Erythema [Recovered/Resolved with Sequelae]
  - Dyspnoea [Recovered/Resolved with Sequelae]

NARRATIVE: CASE EVENT DATE: 20171124
